FAERS Safety Report 16911648 (Version 2)
Quarter: 2020Q1

REPORT INFORMATION
  Report Type: Spontaneous
  Country: US (occurrence: US)
  Receive Date: 20191013
  Receipt Date: 20200101
  Transmission Date: 20200409
  Serious: Yes (Hospitalization, Congenital Anomaly, Other)
  Sender: FDA-Public Use
  Company Number: US-AUROBINDO-AUR-APL-2019-064938

PATIENT
  Age: 16 Year
  Sex: Male

DRUGS (4)
  1. VITAMINS NOS [Interacting]
     Active Substance: VITAMINS
     Indication: PRODUCT USED FOR UNKNOWN INDICATION
     Dosage: UNK
     Route: 065
  2. MINERALS NOS [Interacting]
     Active Substance: MINERALS
     Indication: PRODUCT USED FOR UNKNOWN INDICATION
     Dosage: UNK
     Route: 065
  3. DIVALPROEX SODIUM EXTENDED-RELEASE TABLETS USP 500MG [Suspect]
     Active Substance: DIVALPROEX SODIUM
     Indication: EPILEPSY
     Dosage: 1000 MILLIGRAM (TAKEN BY MOUTH AT BEDTIME)
     Route: 065
  4. DIVALPROEX SODIUM EXTENDED-RELEASE TABLETS USP 500MG [Interacting]
     Active Substance: DIVALPROEX SODIUM
     Dosage: 2 DOSAGE FORM, ONCE A DAY, AT BEDTIME
     Route: 048

REACTIONS (5)
  - Herbal interaction [Recovered/Resolved]
  - Food interaction [Recovered/Resolved]
  - Seizure [Recovered/Resolved]
  - Drug interaction [Recovered/Resolved]
  - Drug level decreased [Recovered/Resolved]

NARRATIVE: CASE EVENT DATE: 201401
